FAERS Safety Report 18527024 (Version 2)
Quarter: 2021Q1

REPORT INFORMATION
  Report Type: Report from Study
  Country: GB (occurrence: GB)
  Receive Date: 20201120
  Receipt Date: 20210301
  Transmission Date: 20210419
  Serious: Yes (Hospitalization)
  Sender: FDA-Public Use
  Company Number: GB-ELI_LILLY_AND_COMPANY-GB202011004816

PATIENT
  Age: 77 Year
  Sex: Female

DRUGS (2)
  1. FORSTEO [Suspect]
     Active Substance: TERIPARATIDE
     Indication: OSTEOPOROSIS
     Dosage: 20 UG, DAILY
     Route: 058
     Dates: start: 20190417, end: 20201012
  2. FORSTEO [Suspect]
     Active Substance: TERIPARATIDE
     Dosage: 20 UG, DAILY
     Route: 058

REACTIONS (4)
  - Blood pressure decreased [Unknown]
  - Fluid retention [Unknown]
  - Peripheral swelling [Unknown]
  - Blood calcium increased [Unknown]

NARRATIVE: CASE EVENT DATE: 20201019
